FAERS Safety Report 21493662 (Version 3)
Quarter: 2023Q1

REPORT INFORMATION
  Report Type: Spontaneous
  Country: BE (occurrence: BE)
  Receive Date: 20221021
  Receipt Date: 20230110
  Transmission Date: 20230417
  Serious: Yes (Death)
  Sender: FDA-Public Use
  Company Number: None

PATIENT
  Sex: Male
  Weight: .77 kg

DRUGS (3)
  1. CUROSURF [Suspect]
     Active Substance: PORACTANT ALFA
     Indication: Neonatal respiratory distress syndrome
     Dosage: 160 MILLIGRAM, (1X)
     Route: 038
     Dates: start: 20220920, end: 20220920
  2. CAFFEINE [Concomitant]
     Active Substance: CAFFEINE
     Indication: Product used for unknown indication
     Dosage: UNK
     Dates: start: 202209, end: 20220922
  3. INSULIN NOS [Concomitant]
     Active Substance: INSULIN NOS
     Indication: Product used for unknown indication
     Dosage: UNK
     Dates: start: 202209, end: 20220922

REACTIONS (4)
  - Pneumonia necrotising [Fatal]
  - Sepsis neonatal [Fatal]
  - Prescribed overdose [Fatal]
  - Suspected product contamination [Recovered/Resolved]

NARRATIVE: CASE EVENT DATE: 20220101
